FAERS Safety Report 13423825 (Version 1)
Quarter: 2017Q2

REPORT INFORMATION
  Report Type: Spontaneous
  Country: IT (occurrence: IT)
  Receive Date: 20170410
  Receipt Date: 20170410
  Transmission Date: 20170830
  Serious: Yes (Hospitalization)
  Sender: FDA-Public Use
  Company Number: IT-UNICHEM LABORATORIES LIMITED-UCM201704-000086

PATIENT
  Age: 66 Year
  Sex: Female

DRUGS (6)
  1. AMLODIPINE [Suspect]
     Active Substance: AMLODIPINE BESYLATE
  2. RIFAMPICIN [Suspect]
     Active Substance: RIFAMPIN
  3. CLINDAMYCIN. [Suspect]
     Active Substance: CLINDAMYCIN
  4. METFORMIN [Concomitant]
     Active Substance: METFORMIN HYDROCHLORIDE
  5. MINOCYCLINE [Suspect]
     Active Substance: MINOCYCLINE\MINOCYCLINE HYDROCHLORIDE
  6. BISOPROLOL FUMARATE. [Suspect]
     Active Substance: BISOPROLOL FUMARATE

REACTIONS (6)
  - Atrioventricular block complete [Recovering/Resolving]
  - Oedema peripheral [Recovering/Resolving]
  - Drug interaction [Unknown]
  - Acute kidney injury [Recovering/Resolving]
  - Sensory disturbance [Recovering/Resolving]
  - Toxicity to various agents [Unknown]
